FAERS Safety Report 14003578 (Version 4)
Quarter: 2019Q1

REPORT INFORMATION
  Report Type: Spontaneous
  Country: IT (occurrence: IT)
  Receive Date: 20170922
  Receipt Date: 20190101
  Transmission Date: 20190417
  Serious: Yes (Hospitalization, Other)
  Sender: FDA-Public Use
  Company Number: IT-ACCORD-057856

PATIENT
  Age: 33 Year
  Sex: Female

DRUGS (6)
  1. FLUOXETINE [Suspect]
     Active Substance: FLUOXETINE HYDROCHLORIDE
     Route: 048
  2. TACHIDOL [Suspect]
     Active Substance: ACETAMINOPHEN\CODEINE PHOSPHATE
     Route: 048
     Dates: start: 201707
  3. CARBOLITHIUM TEVA [Suspect]
     Active Substance: LITHIUM CARBONATE
     Dosage: 1500 MG TOTAL
     Route: 048
  4. QUETIAPINE. [Suspect]
     Active Substance: QUETIAPINE
     Route: 048
  5. AUGMENTIN [Suspect]
     Active Substance: AMOXICILLIN\CLAVULANATE POTASSIUM
     Route: 048
     Dates: start: 201707
  6. LORAZEPAM. [Suspect]
     Active Substance: LORAZEPAM
     Route: 048

REACTIONS (9)
  - Pelvic pain [Recovering/Resolving]
  - Drug abuse [Unknown]
  - Protein C increased [Recovering/Resolving]
  - Alcohol interaction [Unknown]
  - Induced abortion failed [Unknown]
  - Pyrexia [Recovering/Resolving]
  - Maternal exposure during pregnancy [Unknown]
  - Overdose [Unknown]
  - Leukocytosis [Recovering/Resolving]

NARRATIVE: CASE EVENT DATE: 2017
